FAERS Safety Report 21546511 (Version 2)
Quarter: 2022Q4

REPORT INFORMATION
  Report Type: Spontaneous
  Country: US (occurrence: US)
  Receive Date: 20221103
  Receipt Date: 20221104
  Transmission Date: 20230113
  Serious: No
  Sender: FDA-Public Use
  Company Number: US-002147023-NVSC2022US244694

PATIENT
  Sex: Female

DRUGS (1)
  1. REGONOL [Suspect]
     Active Substance: PYRIDOSTIGMINE BROMIDE
     Indication: Product used for unknown indication
     Dosage: TAKE EVERY THREE AND A HALF HOURS
     Route: 065

REACTIONS (3)
  - Secretion discharge [Unknown]
  - Abdominal pain upper [Unknown]
  - Muscle spasms [Unknown]
